FAERS Safety Report 25094817 (Version 2)
Quarter: 2025Q1

REPORT INFORMATION
  Report Type: Report from Study
  Country: US (occurrence: US)
  Receive Date: 20250319
  Receipt Date: 20250320
  Transmission Date: 20250409
  Serious: No
  Sender: SANDOZ
  Company Number: US-SANDOZ-SDZ2025US016628

PATIENT
  Age: 14 Year
  Sex: Female

DRUGS (2)
  1. OMNITROPE [Suspect]
     Active Substance: SOMATROPIN
     Indication: Short stature
     Dosage: 1.8 MG, QD (OMNITROPE 10 MG/1.5 ML SOLUTION FOR INJECTION IN CARTRIDGE)
     Route: 058
     Dates: start: 20250217
  2. OMNITROPE [Suspect]
     Active Substance: SOMATROPIN
     Indication: Short stature
     Dosage: 1.8 MG, QD (OMNITROPE 10 MG/1.5 ML SOLUTION FOR INJECTION IN CARTRIDGE)
     Route: 058
     Dates: start: 20250217

REACTIONS (2)
  - Incorrect dose administered by device [Unknown]
  - Device leakage [Unknown]

NARRATIVE: CASE EVENT DATE: 20250317
